FAERS Safety Report 17841201 (Version 1)
Quarter: 2020Q2

REPORT INFORMATION
  Report Type: Spontaneous
  Country: FR (occurrence: FR)
  Receive Date: 20200529
  Receipt Date: 20200529
  Transmission Date: 20200714
  Serious: Yes (Hospitalization)
  Sender: FDA-Public Use
  Company Number: FR-JNJFOC-20200523418

PATIENT
  Age: 81 Year
  Sex: Female
  Weight: 60 kg

DRUGS (7)
  1. KARDEGIC [Concomitant]
     Active Substance: ASPIRIN DL-LYSINE
  2. REVLIMID [Suspect]
     Active Substance: LENALIDOMIDE
     Indication: PLASMA CELL MYELOMA
     Dosage: 25MG 1/J DE J1 A J21
     Route: 042
     Dates: start: 20191218, end: 20200325
  3. PREDNISONE. [Suspect]
     Active Substance: PREDNISONE
     Indication: PLASMA CELL MYELOMA
     Route: 042
     Dates: start: 20200213, end: 20200325
  4. DARZALEX [Suspect]
     Active Substance: DARATUMUMAB
     Indication: PLASMA CELL MYELOMA
     Route: 058
     Dates: start: 20191218, end: 20200325
  5. PENTACARINAT [Concomitant]
     Active Substance: PENTAMIDINE ISETHIONATE
  6. VALACICLOVIR [Concomitant]
     Active Substance: VALACYCLOVIR HYDROCHLORIDE
  7. CLAMOXYL                           /00249601/ [Concomitant]
     Active Substance: AMOXICILLIN

REACTIONS (4)
  - COVID-19 [Recovered/Resolved]
  - Coronavirus infection [Recovered/Resolved]
  - Incorrect dose administered [Unknown]
  - Off label use [Unknown]

NARRATIVE: CASE EVENT DATE: 20191218
